FAERS Safety Report 18124024 (Version 1)
Quarter: 2020Q3

REPORT INFORMATION
  Report Type: Spontaneous
  Country: US (occurrence: US)
  Receive Date: 20200807
  Receipt Date: 20200807
  Transmission Date: 20201103
  Serious: Yes (Hospitalization, Other)
  Sender: FDA-Public Use
  Company Number: US-PFIZER INC-2020294696

PATIENT
  Sex: Male

DRUGS (1)
  1. CYTOMEL [Suspect]
     Active Substance: LIOTHYRONINE SODIUM
     Dosage: UNK

REACTIONS (4)
  - Blood sodium decreased [Unknown]
  - Hyponatraemia [Unknown]
  - Haemorrhage [Unknown]
  - Serotonin deficiency [Unknown]

NARRATIVE: CASE EVENT DATE: 2013
